FAERS Safety Report 12198193 (Version 1)
Quarter: 2016Q1

REPORT INFORMATION
  Report Type: Spontaneous
  Country: US (occurrence: None)
  Receive Date: 20160321
  Receipt Date: 20160321
  Transmission Date: 20160526
  Serious: No
  Sender: FDA-Public Use
  Company Number: None

PATIENT
  Sex: Male

DRUGS (6)
  1. ANTI-NAUSEA MEDICATION [Concomitant]
     Active Substance: UNSPECIFIED INGREDIENT
  2. IRON [Concomitant]
     Active Substance: IRON
  3. GLUCOSAMINE [Concomitant]
     Active Substance: GLUCOSAMINE
  4. AMLODIPINE [Concomitant]
     Active Substance: AMLODIPINE BESYLATE
  5. SUTENT [Suspect]
     Active Substance: SUNITINIB MALATE
     Indication: RENAL CANCER
     Route: 048
     Dates: start: 20160225
  6. LISINOPRIL. [Concomitant]
     Active Substance: LISINOPRIL

REACTIONS (3)
  - Fatigue [None]
  - Nausea [None]
  - Back pain [None]

NARRATIVE: CASE EVENT DATE: 2016
